FAERS Safety Report 23013465 (Version 2)
Quarter: 2023Q4

REPORT INFORMATION
  Report Type: Spontaneous
  Country: GB (occurrence: GB)
  Receive Date: 20231001
  Receipt Date: 20231123
  Transmission Date: 20240110
  Serious: Yes (Other)
  Sender: FDA-Public Use
  Company Number: None

PATIENT
  Age: 31 Year

DRUGS (5)
  1. DULOXETINE [Suspect]
     Active Substance: DULOXETINE
     Dates: start: 20220404, end: 20220505
  2. MELATONIN [Suspect]
     Active Substance: MELATONIN
     Dates: start: 20211028
  3. PROMETHAZINE [Suspect]
     Active Substance: PROMETHAZINE HYDROCHLORIDE
  4. REBOXETINE [Suspect]
     Active Substance: REBOXETINE
     Dates: start: 20220503
  5. VENLAFAXINE [Suspect]
     Active Substance: VENLAFAXINE HYDROCHLORIDE
     Dates: start: 20220104

REACTIONS (9)
  - Skin hyperpigmentation [Recovering/Resolving]
  - Constipation [Recovered/Resolved]
  - Flatulence [Recovered/Resolved]
  - Headache [Recovering/Resolving]
  - Weight increased [Not Recovered/Not Resolved]
  - Dry eye [Recovering/Resolving]
  - Pruritus [Recovering/Resolving]
  - Hyperhidrosis [Recovering/Resolving]
  - Drug interaction [Recovering/Resolving]
